FAERS Safety Report 9738562 (Version 2)
Quarter: 2014Q1

REPORT INFORMATION
  Report Type: Spontaneous
  Country: FR (occurrence: FR)
  Receive Date: 20131209
  Receipt Date: 20140107
  Transmission Date: 20141002
  Serious: Yes (Hospitalization)
  Sender: FDA-Public Use
  Company Number: 2013SP008327

PATIENT
  Age: 59 Year
  Sex: Male

DRUGS (5)
  1. VANCOMYCIN [Suspect]
     Indication: CORNEAL INFECTION
     Route: 047
     Dates: start: 20131116, end: 20131118
  2. PIPERACILLIN/TAZOBACTAM [Suspect]
     Indication: CORNEAL INFECTION
     Route: 042
     Dates: start: 20131113, end: 20131118
  3. TAVANIC [Suspect]
     Indication: CORNEAL INFECTION
     Route: 042
     Dates: start: 20131113, end: 20131118
  4. CEFTAZIDIME [Suspect]
     Indication: CORNEAL INFECTION
     Route: 047
     Dates: start: 20131116, end: 20131118
  5. FORSTEO [Concomitant]

REACTIONS (2)
  - Angioedema [Unknown]
  - Off label use [Unknown]
